FAERS Safety Report 7378174-2 (Version None)
Quarter: 2011Q1

REPORT INFORMATION
  Report Type: 
  Country: None (occurrence: None)
  Receive Date: 20110328
  Receipt Date: 20110316
  Transmission Date: 20110831
  Serious: Yes (Hospitalization)
  Sender: FDA-Public Use
  Company Number: A0751451A

PATIENT
  Age: 58 Year
  Sex: Female
  Weight: 136.4 kg

DRUGS (6)
  1. AVAPRO [Concomitant]
  2. AVANDIA [Suspect]
     Dosage: 8MG PER DAY
     Route: 048
     Dates: start: 20060510, end: 20070101
  3. FLEXERIL [Concomitant]
  4. ALBUTEROL [Concomitant]
  5. HYDROCHLOROTHIAZIDE [Concomitant]
  6. AMITRIPTYLINE HCL [Concomitant]

REACTIONS (2)
  - CARDIAC DISORDER [None]
  - CARDIAC FAILURE CONGESTIVE [None]
